FAERS Safety Report 8591750-4 (Version None)
Quarter: 2012Q3

REPORT INFORMATION
  Report Type: 
  Country: None (occurrence: None)
  Receive Date: 20120814
  Receipt Date: 20120806
  Transmission Date: 20120928
  Serious: Yes (Other)
  Sender: FDA-Public Use
  Company Number: NZ-MILLENNIUM PHARMACEUTICALS, INC.-2012-01590

PATIENT

DRUGS (3)
  1. VELCADE [Suspect]
     Indication: MULTIPLE MYELOMA
     Dosage: 1.6 MG/M2, UNK
     Route: 065
  2. THALIDOMIDE [Concomitant]
     Indication: MULTIPLE MYELOMA
  3. DEXAMETHASONE [Concomitant]
     Indication: MULTIPLE MYELOMA

REACTIONS (2)
  - DIAPHRAGMATIC PARALYSIS [None]
  - DYSPNOEA [None]
